FAERS Safety Report 16716658 (Version 2)
Quarter: 2019Q4

REPORT INFORMATION
  Report Type: Spontaneous
  Country: IT (occurrence: IT)
  Receive Date: 20190819
  Receipt Date: 20191205
  Transmission Date: 20200122
  Serious: Yes (Other)
  Sender: FDA-Public Use
  Company Number: PHHY2019IT192170

PATIENT
  Age: 24 Year
  Sex: Female

DRUGS (3)
  1. AZITHROMYCIN ANHYDROUS. [Suspect]
     Active Substance: AZITHROMYCIN ANHYDROUS
     Indication: PROPHYLAXIS
     Dosage: 500 MG, QD
     Route: 048
     Dates: start: 20190530, end: 20190802
  2. COUMADIN [Suspect]
     Active Substance: WARFARIN SODIUM
     Indication: ATRIAL FIBRILLATION
     Dosage: 5 MG, PRN (AS NECESSARY)
     Route: 048
     Dates: start: 20190605, end: 20190605
  3. PARACETAMOL [Concomitant]
     Active Substance: ACETAMINOPHEN
     Indication: ANALGESIC THERAPY
     Dosage: 1 G, UNK
     Route: 048
     Dates: start: 20190602

REACTIONS (4)
  - Abdominal pain [Recovered/Resolved]
  - Nausea [Recovered/Resolved]
  - Anaesthesia [Recovered/Resolved]
  - Dysentery [Recovered/Resolved]

NARRATIVE: CASE EVENT DATE: 20190602
